FAERS Safety Report 5633170-8 (Version None)
Quarter: 2008Q1

REPORT INFORMATION
  Report Type: 
  Country: None (occurrence: None)
  Receive Date: 20080221
  Receipt Date: 20080214
  Transmission Date: 20080703
  Serious: Yes (Disabling)
  Sender: FDA-Public Use
  Company Number: VE-AVENTIS-200811515GDDC

PATIENT
  Age: 33 Year
  Sex: Male

DRUGS (1)
  1. LANTUS [Suspect]
     Route: 058

REACTIONS (4)
  - ARTHRALGIA [None]
  - ARTHRITIS [None]
  - HYPOKINESIA [None]
  - SWELLING [None]
